FAERS Safety Report 7827433-5 (Version None)
Quarter: 2011Q4

REPORT INFORMATION
  Report Type: 
  Country: None (occurrence: None)
  Receive Date: 20111019
  Receipt Date: 20111019
  Transmission Date: 20120403
  Serious: Yes (Hospitalization, Other)
  Sender: FDA-Public Use
  Company Number: None

PATIENT
  Sex: Male
  Weight: 79.3795 kg

DRUGS (2)
  1. NEXAVAR [Suspect]
     Indication: RENAL CELL CARCINOMA
     Dosage: 200 MG TWICE A DAY BY MOUTH PRIOR TO ADMISSION
     Route: 048
  2. PREDNISONE [Suspect]
     Indication: ARTHRALGIA
     Dosage: 10 MG  DAILY BY MOUTH ^SEVERAL MONTHS^
     Route: 048

REACTIONS (1)
  - LARGE INTESTINE PERFORATION [None]
